FAERS Safety Report 22343635 (Version 1)
Quarter: 2023Q2

REPORT INFORMATION
  Report Type: Spontaneous
  Country: CA (occurrence: CA)
  Receive Date: 20230519
  Receipt Date: 20230519
  Transmission Date: 20230722
  Serious: Yes (Other)
  Sender: FDA-Public Use
  Company Number: CA-BRISTOL-MYERS SQUIBB COMPANY-2023-069861

PATIENT
  Sex: Male

DRUGS (14)
  1. APIXABAN [Suspect]
     Active Substance: APIXABAN
     Indication: Prinzmetal angina
  2. APIXABAN [Suspect]
     Active Substance: APIXABAN
     Indication: Hereditary alpha tryptasaemia
  3. AMLODIPINE BESYLATE [Concomitant]
     Active Substance: AMLODIPINE BESYLATE
     Indication: Prinzmetal angina
  4. AMLODIPINE BESYLATE [Concomitant]
     Active Substance: AMLODIPINE BESYLATE
     Indication: Hereditary alpha tryptasaemia
  5. BOSENTAN [Concomitant]
     Active Substance: BOSENTAN
     Indication: Prinzmetal angina
  6. BOSENTAN [Concomitant]
     Active Substance: BOSENTAN
     Indication: Hereditary alpha tryptasaemia
  7. DILTIAZEM HYDROCHLORIDE [Concomitant]
     Active Substance: DILTIAZEM HYDROCHLORIDE
     Indication: Prinzmetal angina
  8. DILTIAZEM HYDROCHLORIDE [Concomitant]
     Active Substance: DILTIAZEM HYDROCHLORIDE
     Indication: Hereditary alpha tryptasaemia
  9. ISOSORBIDE MONONITRATE [Concomitant]
     Active Substance: ISOSORBIDE MONONITRATE
     Indication: Prinzmetal angina
  10. ISOSORBIDE MONONITRATE [Concomitant]
     Active Substance: ISOSORBIDE MONONITRATE
     Indication: Hereditary alpha tryptasaemia
  11. MOMETASONE [Concomitant]
     Active Substance: MOMETASONE
     Indication: Prinzmetal angina
     Dosage: SPRAY, METERED DOSE
  12. MOMETASONE [Concomitant]
     Active Substance: MOMETASONE
     Indication: Hereditary alpha tryptasaemia
  13. PREDNISONE [Concomitant]
     Active Substance: PREDNISONE
     Indication: Prinzmetal angina
  14. PREDNISONE [Concomitant]
     Active Substance: PREDNISONE
     Indication: Hereditary alpha tryptasaemia

REACTIONS (4)
  - Hypersensitivity [Unknown]
  - Mast cell activation syndrome [Unknown]
  - Coronary artery disease [Unknown]
  - Off label use [Unknown]
